APPROVED DRUG PRODUCT: HYDROMORPHONE HYDROCHLORIDE
Active Ingredient: HYDROMORPHONE HYDROCHLORIDE
Strength: 2MG/ML
Dosage Form/Route: INJECTABLE;INJECTION
Application: A202159 | Product #001 | TE Code: AP
Applicant: HIKMA PHARMACEUTICALS USA INC
Approved: Apr 27, 2018 | RLD: No | RS: No | Type: RX